FAERS Safety Report 10595999 (Version 4)
Quarter: 2014Q4

REPORT INFORMATION
  Report Type: Spontaneous
  Country: IT (occurrence: IT)
  Receive Date: 20141120
  Receipt Date: 20141210
  Transmission Date: 20150529
  Serious: Yes (Hospitalization, Other)
  Sender: FDA-Public Use
  Company Number: IT-BRISTOL-MYERS SQUIBB COMPANY-21607742

PATIENT
  Age: 79 Year
  Sex: Male

DRUGS (7)
  1. METFORMIN HYDROCHLORIDE. [Suspect]
     Active Substance: METFORMIN HYDROCHLORIDE
     Indication: DIABETES MELLITUS
     Dosage: 3000 MG, QD
     Route: 048
     Dates: start: 20140101, end: 20141022
  2. GLUCOBAY [Suspect]
     Active Substance: ACARBOSE
     Indication: DIABETES MELLITUS
     Dosage: LAST DOSE: 22-OCT-2014
     Route: 048
     Dates: start: 20140101, end: 20141022
  3. LEVOXACIN [Concomitant]
     Active Substance: LEVOFLOXACIN
  4. AMARYL [Suspect]
     Active Substance: GLIMEPIRIDE
     Indication: DIABETES MELLITUS
     Dosage: LAST DOSE: 22-OCT-2014
     Route: 048
     Dates: start: 20140101, end: 20141022
  5. NORVASC [Concomitant]
     Active Substance: AMLODIPINE BESYLATE
  6. LANOXIN [Concomitant]
     Active Substance: DIGOXIN
  7. EUTIROX [Concomitant]
     Active Substance: LEVOTHYROXINE SODIUM

REACTIONS (2)
  - Hypoglycaemic coma [Unknown]
  - Unresponsive to stimuli [Unknown]

NARRATIVE: CASE EVENT DATE: 20141022
